FAERS Safety Report 4263638-0 (Version None)
Quarter: 2004Q1

REPORT INFORMATION
  Report Type: 
  Country: None (occurrence: None)
  Receive Date: 20040102
  Receipt Date: 20031219
  Transmission Date: 20041129
  Serious: Yes (Other)
  Sender: FDA-Public Use
  Company Number: 2003126149

PATIENT

DRUGS (9)
  1. EPANUTIN (PHENYTOIN SODIUM) [Suspect]
     Indication: ILL-DEFINED DISORDER
     Dosage: 300 MG (DAILY), ORAL
     Route: 048
  2. DORBAMEX (DANTRON, POLOXAMER) [Concomitant]
  3. ACETYLSALICYLIC ACID SRT [Concomitant]
  4. BENDROFLUMETHIAZINE (BENDROFLUMETHIAZINE) [Concomitant]
  5. DEXAMETHASONE [Concomitant]
  6. ZOPICLONE (ZOPICLONE) [Concomitant]
  7. METOCLOPRAMIDE [Concomitant]
  8. LANSOPRAZOLE [Concomitant]
  9. CODEINE PHOSPHATE AND ACETAMINOPHEN [Concomitant]

REACTIONS (4)
  - LUNG NEOPLASM MALIGNANT [None]
  - METASTATIC NEOPLASM [None]
  - SEPSIS [None]
  - THROMBOCYTOPENIA [None]
